FAERS Safety Report 26208299 (Version 1)
Quarter: 2025Q4

REPORT INFORMATION
  Report Type: Report from Study
  Country: ZA (occurrence: ZA)
  Receive Date: 20251229
  Receipt Date: 20251229
  Transmission Date: 20260117
  Serious: Yes (Other)
  Sender: ROCHE
  Company Number: ZA-ROCHE-10000462528

PATIENT
  Sex: Female

DRUGS (1)
  1. ACTEMRA [Suspect]
     Active Substance: TOCILIZUMAB
     Indication: Product used for unknown indication

REACTIONS (5)
  - Condition aggravated [Unknown]
  - Haemoglobin decreased [Unknown]
  - Platelet count decreased [Unknown]
  - Blood creatinine decreased [Unknown]
  - C-reactive protein increased [Unknown]
